FAERS Safety Report 9683887 (Version 2)
Quarter: 2014Q1

REPORT INFORMATION
  Report Type: Spontaneous
  Country: US (occurrence: US)
  Receive Date: 20131112
  Receipt Date: 20140212
  Transmission Date: 20141002
  Serious: No
  Sender: FDA-Public Use
  Company Number: US-MALLINCKRODT-T201304661

PATIENT
  Age: 63 Year
  Sex: Male
  Weight: 83.9 kg

DRUGS (6)
  1. FENTANYL TRANSDERMAL SYSTEM [Suspect]
     Indication: ARTHRALGIA
     Dosage: 75 UG/HR, 1 PATCH Q 3 DAYS
     Route: 062
     Dates: start: 201301
  2. LYRICA [Concomitant]
     Dosage: UNK
     Route: 065
  3. NUCYNTA [Concomitant]
     Dosage: UNK
     Route: 065
  4. ZYPREXA [Concomitant]
     Dosage: UNK
  5. NEURONTIN [Concomitant]
     Dosage: UNK
     Route: 065
  6. CELEXA                             /00582602/ [Concomitant]

REACTIONS (3)
  - Sensation of heaviness [Recovered/Resolved]
  - Drug withdrawal syndrome [Recovered/Resolved]
  - Drug screen negative [Unknown]
